FAERS Safety Report 8599070-9 (Version None)
Quarter: 2012Q3

REPORT INFORMATION
  Report Type: 
  Country: None (occurrence: None)
  Receive Date: 20120806
  Receipt Date: 20120806
  Transmission Date: 20120928
  Serious: Yes (Other)
  Sender: FDA-Public Use
  Company Number: None

PATIENT
  Age: 69 Year
  Sex: Male
  Weight: 87 kg

DRUGS (1)
  1. RIVAROXIBAN 20MG JANSSEN [Suspect]
     Indication: ATRIAL FIBRILLATION
     Dosage: 20MG DAILY PO
     Route: 048
     Dates: start: 20120728, end: 20120801

REACTIONS (1)
  - HAEMATURIA [None]
